FAERS Safety Report 9521978 (Version 1)
Quarter: 2013Q3

REPORT INFORMATION
  Report Type: Spontaneous
  Country: US (occurrence: US)
  Receive Date: 20130913
  Receipt Date: 20130913
  Transmission Date: 20140515
  Serious: Yes (Hospitalization)
  Sender: FDA-Public Use
  Company Number: US-ABBOTT-13P-163-1143667-00

PATIENT
  Age: 32 Year
  Sex: Female
  Weight: 121.67 kg

DRUGS (6)
  1. HUMIRA [Suspect]
     Indication: JUVENILE IDIOPATHIC ARTHRITIS
     Dates: start: 2003, end: 2004
  2. HUMIRA [Suspect]
     Dates: start: 2004, end: 201103
  3. HUMIRA [Suspect]
     Dates: start: 201210, end: 201308
  4. PREDNISONE [Concomitant]
     Indication: JUVENILE IDIOPATHIC ARTHRITIS
  5. ALBUTEROL [Concomitant]
     Indication: ASTHMA EXERCISE INDUCED
  6. PROAIR [Concomitant]
     Indication: ASTHMA EXERCISE INDUCED

REACTIONS (7)
  - Blood pressure decreased [Recovered/Resolved]
  - Injection site abscess [Not Recovered/Not Resolved]
  - Injection site rash [Unknown]
  - Wound haemorrhage [Recovered/Resolved]
  - Staphylococcal infection [Recovered/Resolved]
  - Vitamin D decreased [Not Recovered/Not Resolved]
  - Staphylococcal infection [Not Recovered/Not Resolved]
